FAERS Safety Report 10328122 (Version 1)
Quarter: 2014Q3

REPORT INFORMATION
  Report Type: Spontaneous
  Country: CN (occurrence: CN)
  Receive Date: 20140721
  Receipt Date: 20140721
  Transmission Date: 20150326
  Serious: Yes (Other)
  Sender: FDA-Public Use
  Company Number: PHHY2014CN088130

PATIENT
  Age: 64 Year
  Sex: Male
  Weight: 71 kg

DRUGS (2)
  1. VOLTAREN [Suspect]
     Active Substance: DICLOFENAC SODIUM
     Indication: PERIARTHRITIS
     Dosage: 1 DF (75MG ), QD
     Route: 048
     Dates: start: 20140119, end: 20140122
  2. MYONAL [Suspect]
     Active Substance: EPERISONE HYDROCHLORIDE
     Indication: PERIARTHRITIS
     Dosage: 1 DF, TID
     Route: 048
     Dates: start: 20140119, end: 20140122

REACTIONS (4)
  - Ophthalmoplegia [Recovered/Resolved]
  - Diplopia [Recovered/Resolved]
  - Nausea [Recovered/Resolved]
  - Eye disorder [Recovered/Resolved]

NARRATIVE: CASE EVENT DATE: 20140120
